FAERS Safety Report 5326454-4 (Version None)
Quarter: 2007Q2

REPORT INFORMATION
  Report Type: 
  Country: None (occurrence: None)
  Receive Date: 20070516
  Receipt Date: 20070515
  Transmission Date: 20071010
  Serious: Yes (Death, Hospitalization, Other)
  Sender: FDA-Public Use
  Company Number: US-BRISTOL-MYERS SQUIBB COMPANY-13780234

PATIENT
  Age: 65 Year
  Sex: Male
  Weight: 74 kg

DRUGS (14)
  1. CARBOPLATIN [Suspect]
     Indication: SMALL CELL LUNG CANCER EXTENSIVE STAGE
     Route: 042
     Dates: start: 20070502, end: 20070502
  2. PEMETREXED DISODIUM [Suspect]
     Indication: SMALL CELL LUNG CANCER EXTENSIVE STAGE
     Route: 042
     Dates: start: 20070502, end: 20070502
  3. FOLIC ACID [Concomitant]
     Dates: start: 20070426, end: 20070501
  4. VITAMIN B-12 [Concomitant]
     Dates: start: 20070426, end: 20070426
  5. DEXAMETHASONE 0.5MG TAB [Concomitant]
     Dates: start: 20070430, end: 20070501
  6. HYZAAR [Concomitant]
  7. LOPID [Concomitant]
  8. METOPROLOL SUCCINATE [Concomitant]
  9. ATIVAN [Concomitant]
  10. INDOMETHACIN [Concomitant]
  11. TESTOSTERONE [Concomitant]
  12. MULTI-VITAMIN [Concomitant]
  13. ASCORBIC ACID [Concomitant]
  14. FENTANYL [Concomitant]

REACTIONS (9)
  - ABDOMINAL PAIN [None]
  - COLITIS [None]
  - DIARRHOEA [None]
  - DYSPHAGIA [None]
  - DYSPNOEA [None]
  - MENTAL IMPAIRMENT [None]
  - NAUSEA [None]
  - RENAL FAILURE [None]
  - TUMOUR LYSIS SYNDROME [None]
